FAERS Safety Report 15223530 (Version 3)
Quarter: 2018Q3

REPORT INFORMATION
  Report Type: Report from Study
  Country: ES (occurrence: ES)
  Receive Date: 20180731
  Receipt Date: 20180927
  Transmission Date: 20181010
  Serious: Yes (Other)
  Sender: FDA-Public Use
  Company Number: ES-BIOVITRUM-2018BV000526

PATIENT
  Sex: Male
  Weight: 60 kg

DRUGS (1)
  1. ALPROLIX [Suspect]
     Active Substance: EFTRENONACOG ALFA
     Indication: FACTOR IX DEFICIENCY
     Dosage: CONTINUOUS PROPHYLAXIS
     Route: 065

REACTIONS (1)
  - Factor IX inhibition [Recovered/Resolved]

NARRATIVE: CASE EVENT DATE: 201707
